FAERS Safety Report 8567880-X (Version None)
Quarter: 2012Q3

REPORT INFORMATION
  Report Type: 
  Country: None (occurrence: None)
  Receive Date: 20120803
  Receipt Date: 20120801
  Transmission Date: 20120928
  Serious: Yes (Hospitalization)
  Sender: FDA-Public Use
  Company Number: US-PFIZER INC-2012187288

PATIENT
  Sex: Female
  Weight: 78.8 kg

DRUGS (9)
  1. PDGFRA [Suspect]
     Indication: SARCOMA
     Dosage: 1125 MG, OTHER
     Dates: start: 20120301, end: 20120621
  2. PULMICORT [Concomitant]
  3. WARFARIN [Concomitant]
  4. LORAZEPAM [Concomitant]
  5. METOPROLOL TARTRATE [Suspect]
  6. ACETYLSALICYLIC ACID [Concomitant]
  7. DOXORUBICIN HCL [Suspect]
     Indication: SARCOMA
     Dosage: 145 MG, OTHER
     Dates: start: 20120301, end: 20120503
  8. PDGFRA [Suspect]
     Dosage: UNK
     Dates: start: 20120705
  9. XOPENEX [Concomitant]

REACTIONS (2)
  - SINUS BRADYCARDIA [None]
  - TROPONIN INCREASED [None]
